FAERS Safety Report 6373107-X (Version None)
Quarter: 2009Q3

REPORT INFORMATION
  Report Type: 
  Country: None (occurrence: None)
  Receive Date: 20090924
  Receipt Date: 20090611
  Transmission Date: 20100115
  Serious: Yes (Other)
  Sender: FDA-Public Use
  Company Number: US-ASTRAZENECA-2009UW03093

PATIENT
  Sex: Male
  Weight: 93 kg

DRUGS (3)
  1. SEROQUEL [Suspect]
     Indication: MOOD SWINGS
     Dosage: 100 TO 450 MG
     Route: 048
     Dates: start: 20040501, end: 20070901
  2. SEROQUEL [Suspect]
     Indication: INSOMNIA
     Dosage: 100 TO 450 MG
     Route: 048
     Dates: start: 20040501, end: 20070901
  3. ABILIFY [Concomitant]

REACTIONS (4)
  - DIABETES MELLITUS [None]
  - DIABETIC COMA [None]
  - PANCREATITIS [None]
  - SUICIDE ATTEMPT [None]
